FAERS Safety Report 4404811-8 (Version None)
Quarter: 2004Q3

REPORT INFORMATION
  Report Type: 
  Country: None (occurrence: None)
  Receive Date: 20040715
  Receipt Date: 20040702
  Transmission Date: 20050211
  Serious: Yes (Death)
  Sender: FDA-Public Use
  Company Number: 2004018055

PATIENT
  Age: 62 Year
  Sex: Male
  Weight: 49.8957 kg

DRUGS (4)
  1. DILANTIN [Suspect]
     Indication: CONVULSION
     Dosage: 300 MG (100 MG, 3 IN 1 D), ORAL
     Route: 048
     Dates: start: 20040130
  2. ROFECOXIB [Concomitant]
  3. MULTIVITAMIN [Concomitant]
  4. RISEDRONATE SODIUM [Concomitant]

REACTIONS (6)
  - ANTICONVULSANT DRUG LEVEL DECREASED [None]
  - CARDIO-RESPIRATORY ARREST [None]
  - DEMENTIA [None]
  - HYPERSOMNIA [None]
  - LETHARGY [None]
  - MALAISE [None]
